FAERS Safety Report 7490220-4 (Version None)
Quarter: 2011Q2

REPORT INFORMATION
  Report Type: 
  Country: None (occurrence: None)
  Receive Date: 20110519
  Receipt Date: 20110426
  Transmission Date: 20111010
  Serious: No
  Sender: FDA-Public Use
  Company Number: US-TYCO HEALTHCARE/MALLINCKRODT-T201100838

PATIENT
  Sex: Male

DRUGS (3)
  1. FENTANYL-100 [Suspect]
     Indication: BACK PAIN
     Dosage: 75 UG/HR EVERY 72 HOURS
     Route: 062
     Dates: start: 20110404
  2. NORCO [Concomitant]
     Indication: PAIN
     Dosage: 10/325 MG Q4-6 HOURS AS NEEDED
  3. KLONOPIN [Concomitant]
     Indication: PAIN
     Dosage: 0.5 MG, TID

REACTIONS (3)
  - SENSORY DISTURBANCE [None]
  - DRUG EFFECT DECREASED [None]
  - WITHDRAWAL SYNDROME [None]
